FAERS Safety Report 6495412-9 (Version None)
Quarter: 2009Q4

REPORT INFORMATION
  Report Type: 
  Country: None (occurrence: None)
  Receive Date: 20091214
  Receipt Date: 20090617
  Transmission Date: 20100525
  Serious: No
  Sender: FDA-Public Use
  Company Number: US-BRISTOL-MYERS SQUIBB COMPANY-14668230

PATIENT
  Age: 4 Decade
  Sex: Male
  Weight: 220 kg

DRUGS (2)
  1. ABILIFY [Suspect]
     Dosage: INITIAL DOSE 2MG FOR 2WEEKS
  2. LEXAPRO [Suspect]

REACTIONS (1)
  - DYSTONIA [None]
